FAERS Safety Report 6017173-X (Version None)
Quarter: 2008Q4

REPORT INFORMATION
  Report Type: 
  Country: None (occurrence: None)
  Receive Date: 20081223
  Receipt Date: 20081211
  Transmission Date: 20090506
  Serious: Yes (Other)
  Sender: FDA-Public Use
  Company Number: ES-ROCHE-602536

PATIENT
  Age: 64 Year
  Sex: Male

DRUGS (6)
  1. RIVOTRIL [Suspect]
     Indication: MUSCLE SPASTICITY
     Dosage: STRENGTH : 1 MG/ML SOLUTION FOR INJECTION.
     Route: 042
     Dates: start: 20080915, end: 20080919
  2. PHENYTOIN [Interacting]
     Indication: MUSCLE SPASTICITY
     Dosage: DRUG NAME REPORTED AS PHENITOINE.
     Route: 042
     Dates: start: 20080915, end: 20080918
  3. CLAVULANATE POTASSIUM [Interacting]
     Indication: RESPIRATORY TRACT INFECTION
     Dosage: DRUG NAME REPORTED AS CLAVULANIC ACID + AMOXYCILLIN
     Route: 042
     Dates: start: 20080915, end: 20080923
  4. OMEPRAZOLE [Interacting]
     Indication: PROPHYLAXIS
     Route: 042
     Dates: start: 20080915, end: 20080915
  5. ENOXAPARIN SODIUM [Concomitant]
     Indication: PROPHYLAXIS
     Route: 058
     Dates: start: 20080915, end: 20080915
  6. PROPOFOL [Concomitant]
     Indication: SEDATION
     Dosage: DRUG NAME REPORTED AS PROPOPHOL
     Route: 042
     Dates: start: 20080915, end: 20080915

REACTIONS (2)
  - DRUG INTERACTION [None]
  - HYPERTRANSAMINASAEMIA [None]
